FAERS Safety Report 8886188 (Version 1)
Quarter: 2012Q4

REPORT INFORMATION
  Report Type: 
  Country: US (occurrence: US)
  Receive Date: 20121105
  Receipt Date: 20121105
  Transmission Date: 20130627
  Serious: Yes (Other)
  Sender: FDA-Public Use
  Company Number: US-ROCHE-1148876

PATIENT
  Sex: Female

DRUGS (3)
  1. CELLCEPT [Suspect]
     Indication: DEMYELINATING POLYNEUROPATHY
     Route: 065
     Dates: start: 2003
  2. CELLCEPT [Suspect]
     Route: 065
  3. PREDNISONE [Concomitant]
     Indication: CHRONIC INFLAMMATORY DEMYELINATING POLYRADICULONEUROPATHY
     Route: 065

REACTIONS (2)
  - Hepatic cirrhosis [Unknown]
  - Hepatic function abnormal [Unknown]
